FAERS Safety Report 8266181-7 (Version None)
Quarter: 2012Q2

REPORT INFORMATION
  Report Type: 
  Country: None (occurrence: None)
  Receive Date: 20120406
  Receipt Date: 20120329
  Transmission Date: 20120825
  Serious: Yes (Hospitalization)
  Sender: FDA-Public Use
  Company Number: US-PFIZER INC-2012081602

PATIENT
  Age: 47 Year
  Sex: Female

DRUGS (4)
  1. VALPROIC ACID [Suspect]
     Dosage: 500 MG, 2X/DAY
  2. LEVOCARNITINE [Suspect]
     Dosage: 990 MG, 2X/DAY
  3. CALCIUM ACETATE [Concomitant]
     Dosage: 667 MG, 3X/DAY
  4. CINACALCET [Concomitant]
     Dosage: 30 MG, 1X/DAY

REACTIONS (3)
  - HYPOCALCAEMIA [None]
  - TOXICITY TO VARIOUS AGENTS [None]
  - HYPOPHOSPHATAEMIA [None]
